FAERS Safety Report 9530783 (Version 1)
Quarter: 2013Q3

REPORT INFORMATION
  Report Type: Spontaneous
  Country: US (occurrence: None)
  Receive Date: 20130916
  Receipt Date: 20130916
  Transmission Date: 20140515
  Serious: Yes (Disabling, Other)
  Sender: FDA-Public Use
  Company Number: None

PATIENT
  Age: 68 Year
  Sex: Male
  Weight: 86.18 kg

DRUGS (14)
  1. WELCHOL [Suspect]
     Indication: HYPERLIPIDAEMIA
     Dosage: 6 TABLETS QD ORAL
     Route: 048
     Dates: start: 20130415, end: 20130908
  2. AMLODIPINE(NORVASC) [Concomitant]
  3. ASPIRIN [Concomitant]
  4. BENAZEPRIL(LOTENSIN) [Concomitant]
  5. HYDROCHLOROTHIAZIDE [Concomitant]
  6. JANUVIA [Concomitant]
  7. METFORMIN GLUCOPHAGE [Concomitant]
  8. PIOGLITAZONE(ACTOS) [Concomitant]
  9. TADALAFIL(CIALIS) [Concomitant]
  10. COENZYME Q10 [Concomitant]
  11. FLAXSEED OIL [Concomitant]
  12. MULTIVITAMIN [Concomitant]
  13. OMEGA 3 [Concomitant]
  14. ZETIA [Suspect]
     Indication: HYPERLIPIDAEMIA
     Dosage: 1 TABLET QD ORAL
     Route: 048
     Dates: start: 20130115, end: 20130901

REACTIONS (2)
  - Muscle fatigue [None]
  - Asthenia [None]
